FAERS Safety Report 14262208 (Version 1)
Quarter: 2017Q4

REPORT INFORMATION
  Report Type: Report from Study
  Country: US (occurrence: US)
  Receive Date: 20171208
  Receipt Date: 20171208
  Transmission Date: 20180321
  Serious: Yes (Other)
  Sender: FDA-Public Use
  Company Number: US-KYOWAKIRIN-2017BKK000258

PATIENT

DRUGS (4)
  1. GRANISETRON [Suspect]
     Active Substance: GRANISETRON
     Dosage: UNKNOWN
     Route: 062
     Dates: start: 201701
  2. XARELTO [Concomitant]
     Active Substance: RIVAROXABAN
     Indication: ANTICOAGULANT THERAPY
     Dosage: UNK
     Route: 065
  3. GRANISETRON [Suspect]
     Active Substance: GRANISETRON
     Indication: PROPHYLAXIS OF NAUSEA AND VOMITING
     Dosage: 1 DF
     Route: 062
     Dates: start: 201701, end: 201701
  4. GRANISETRON [Suspect]
     Active Substance: GRANISETRON
     Dosage: UNKNOWN
     Route: 062

REACTIONS (9)
  - Spinal operation [Recovered/Resolved]
  - Hypersomnia [Unknown]
  - Product adhesion issue [Unknown]
  - Muscle injury [Unknown]
  - Wrong technique in product usage process [Unknown]
  - Asthenia [Unknown]
  - Nausea [Unknown]
  - Inappropriate schedule of drug administration [Unknown]
  - Drug prescribing error [Unknown]

NARRATIVE: CASE EVENT DATE: 2017
